FAERS Safety Report 21710633 (Version 3)
Quarter: 2023Q2

REPORT INFORMATION
  Report Type: Report from Study
  Country: US (occurrence: US)
  Receive Date: 20221212
  Receipt Date: 20230410
  Transmission Date: 20230721
  Serious: No
  Sender: FDA-Public Use
  Company Number: US-ABBVIE-4232011

PATIENT
  Sex: Female

DRUGS (2)
  1. IMBRUVICA [Suspect]
     Active Substance: IBRUTINIB
     Indication: Waldenstrom^s macroglobulinaemia
     Route: 048
     Dates: start: 20221103
  2. IMBRUVICA [Suspect]
     Active Substance: IBRUTINIB
     Indication: Waldenstrom^s macroglobulinaemia
     Route: 048

REACTIONS (12)
  - Back pain [Unknown]
  - Stomatitis [Unknown]
  - Dysphonia [Unknown]
  - Lymphadenopathy [Unknown]
  - Ventricular extrasystoles [Unknown]
  - Blood immunoglobulin M decreased [Unknown]
  - Facial pain [Unknown]
  - Neuropathy peripheral [Recovering/Resolving]
  - Dry mouth [Unknown]
  - Hypertension [Unknown]
  - Pollakiuria [Unknown]
  - Nausea [Unknown]
